FAERS Safety Report 6834798-X (Version None)
Quarter: 2010Q3

REPORT INFORMATION
  Report Type: 
  Country: None (occurrence: None)
  Receive Date: 20100712
  Receipt Date: 20071106
  Transmission Date: 20110219
  Serious: Yes (Other)
  Sender: FDA-Public Use
  Company Number: US-PFIZER INC-2007026787

PATIENT
  Sex: Male
  Weight: 87.1 kg

DRUGS (4)
  1. CHANTIX [Suspect]
     Indication: SMOKING CESSATION THERAPY
     Dates: start: 20070313, end: 20071001
  2. ERYTHROMYCIN [Suspect]
     Indication: INFLUENZA LIKE ILLNESS
  3. AZITHROMYCIN [Suspect]
     Dates: start: 20070327, end: 20070329
  4. HERBAL PREPARATION [Suspect]

REACTIONS (19)
  - ANXIETY [None]
  - CONSTIPATION [None]
  - DIARRHOEA [None]
  - DIZZINESS [None]
  - DRY THROAT [None]
  - DYSPNOEA [None]
  - ERYTHEMA [None]
  - FATIGUE [None]
  - FEELING ABNORMAL [None]
  - HYPERSENSITIVITY [None]
  - INFLUENZA [None]
  - INFLUENZA LIKE ILLNESS [None]
  - NASOPHARYNGITIS [None]
  - PAIN [None]
  - PRODUCTIVE COUGH [None]
  - PRURITUS [None]
  - SLEEP DISORDER [None]
  - THROAT TIGHTNESS [None]
  - URTICARIA [None]
